FAERS Safety Report 8805157 (Version 1)
Quarter: 2012Q4

REPORT INFORMATION
  Report Type: 
  Country: US (occurrence: US)
  Receive Date: 20120924
  Receipt Date: 20120924
  Transmission Date: 20130627
  Serious: Yes (Death, Hospitalization)
  Sender: FDA-Public Use
  Company Number: US-ROCHE-1127869

PATIENT
  Sex: Male

DRUGS (5)
  1. AVASTIN [Suspect]
     Indication: RENAL CANCER
     Route: 065
  2. AVASTIN [Suspect]
     Route: 065
     Dates: start: 20041229
  3. AVASTIN [Suspect]
     Route: 065
     Dates: start: 20050112
  4. AVASTIN [Suspect]
     Route: 065
     Dates: start: 20050209
  5. AVASTIN [Suspect]
     Route: 065
     Dates: start: 20050304

REACTIONS (4)
  - Death [Fatal]
  - Nausea [Unknown]
  - Vomiting [Unknown]
  - Asthenia [Unknown]
